FAERS Safety Report 20207318 (Version 1)
Quarter: 2021Q4

REPORT INFORMATION
  Report Type: Spontaneous
  Country: US (occurrence: None)
  Receive Date: 20211219
  Receipt Date: 20211219
  Transmission Date: 20220303
  Serious: Yes (Hospitalization)
  Sender: FDA-Public Use
  Company Number: None

PATIENT
  Age: 50 Year
  Sex: Female
  Weight: 68 kg

DRUGS (1)
  1. BAMLANIVIMAB\ETESEVIMAB [Suspect]
     Active Substance: BAMLANIVIMAB\ETESEVIMAB
     Indication: COVID-19 treatment
     Dosage: FREQUENCY : ONCE;?
     Route: 042
     Dates: start: 20211122, end: 20211122

REACTIONS (4)
  - Acute kidney injury [None]
  - Sepsis [None]
  - Diabetic ketoacidosis [None]
  - Pneumonia [None]

NARRATIVE: CASE EVENT DATE: 20211130
